FAERS Safety Report 17483959 (Version 2)
Quarter: 2020Q1

REPORT INFORMATION
  Report Type: Report from Study
  Country: IN (occurrence: IN)
  Receive Date: 20200302
  Receipt Date: 20200303
  Transmission Date: 20200409
  Serious: Yes (Death)
  Sender: FDA-Public Use
  Company Number: NVSC2019IN058923

PATIENT
  Age: 65 Year
  Sex: Female

DRUGS (2)
  1. VYMADA [Suspect]
     Active Substance: SACUBITRIL\VALSARTAN
     Indication: CARDIAC FAILURE CHRONIC
     Dosage: 0.5 DF (100 MG), HALF BID
     Route: 048
     Dates: start: 20191125
  2. VYMADA [Suspect]
     Active Substance: SACUBITRIL\VALSARTAN
     Indication: CARDIAC FAILURE
     Dosage: 100 MG, BID
     Route: 048

REACTIONS (3)
  - Product prescribing error [Unknown]
  - Death [Fatal]
  - Wrong technique in product usage process [Unknown]

NARRATIVE: CASE EVENT DATE: 20191126
